FAERS Safety Report 17204402 (Version 1)
Quarter: 2019Q4

REPORT INFORMATION
  Report Type: Spontaneous
  Country: CN (occurrence: CN)
  Receive Date: 20191226
  Receipt Date: 20191226
  Transmission Date: 20200122
  Serious: Yes (Life-Threatening, Other)
  Sender: FDA-Public Use
  Company Number: CN-PFIZER INC-2019553159

PATIENT
  Age: 31 Year
  Sex: Female
  Weight: 62 kg

DRUGS (2)
  1. PHARMORUBICIN [Suspect]
     Active Substance: EPIRUBICIN
     Indication: BREAST CANCER FEMALE
     Dosage: 145 MG, 1X/DAY
     Route: 042
     Dates: start: 20191203, end: 20191203
  2. ENDOXAN [CYCLOPHOSPHAMIDE] [Suspect]
     Active Substance: CYCLOPHOSPHAMIDE
     Indication: BREAST CANCER FEMALE
     Dosage: 0.96 G, 1X/DAY
     Route: 042
     Dates: start: 20191203, end: 20191203

REACTIONS (2)
  - Bone marrow failure [Recovering/Resolving]
  - Hepatic function abnormal [Recovering/Resolving]

NARRATIVE: CASE EVENT DATE: 20191213
